FAERS Safety Report 8742953 (Version 3)
Quarter: 2012Q4

REPORT INFORMATION
  Report Type: 
  Country: US (occurrence: US)
  Receive Date: 20120824
  Receipt Date: 20120907
  Transmission Date: 20130627
  Serious: Yes (Other)
  Sender: FDA-Public Use
  Company Number: PHEH2012US016497

PATIENT
  Sex: Female

DRUGS (2)
  1. ILARIS [Suspect]
     Indication: CRYOPYRIN ASSOCIATED PERIODIC SYNDROME
     Dosage: 150 mg, every 8 weeks
     Route: 058
  2. ANTIHISTAMINES [Concomitant]

REACTIONS (10)
  - Urticaria [Unknown]
  - Hypokinesia [Unknown]
  - Pain in extremity [Not Recovered/Not Resolved]
  - Chest pain [Not Recovered/Not Resolved]
  - Arthralgia [Not Recovered/Not Resolved]
  - Enuresis [Unknown]
  - Pyrexia [Unknown]
  - Pain [Unknown]
  - Insomnia [Unknown]
  - Pain in extremity [None]
